FAERS Safety Report 7354826-5 (Version None)
Quarter: 2011Q1

REPORT INFORMATION
  Report Type: 
  Country: None (occurrence: None)
  Receive Date: 20110316
  Receipt Date: 20100908
  Transmission Date: 20110831
  Serious: Yes (Other)
  Sender: FDA-Public Use
  Company Number: US-BAYER-200941436NA

PATIENT
  Sex: Female
  Weight: 133.79 kg

DRUGS (8)
  1. YAZ [Suspect]
     Indication: PREMENSTRUAL SYNDROME
  2. MULTIVITAMIN PREPARATION + MINERAL SUPPLEMENT [Concomitant]
  3. PROMETHAZINE [Concomitant]
     Dosage: 25 MG, UNK
  4. ADVIL LIQUI-GELS [Concomitant]
     Dosage: UNK
     Dates: start: 19900101
  5. VICODIN [Concomitant]
  6. METFORMIN HCL [Concomitant]
     Dosage: 500 MG, UNK
  7. YAZ [Suspect]
     Indication: ACNE
     Dosage: UNK
     Dates: start: 20081001, end: 20090601
  8. NSAID'S [Concomitant]
     Dosage: UNK UNK, PRN
     Dates: start: 19900101

REACTIONS (6)
  - DIARRHOEA [None]
  - PAIN [None]
  - GALLBLADDER CHOLESTEROLOSIS [None]
  - NAUSEA [None]
  - VOMITING [None]
  - CHOLECYSTITIS CHRONIC [None]
